FAERS Safety Report 6517475-4 (Version None)
Quarter: 2009Q4

REPORT INFORMATION
  Report Type: 
  Country: None (occurrence: None)
  Receive Date: 20091224
  Receipt Date: 20091218
  Transmission Date: 20100525
  Serious: Yes (Other)
  Sender: FDA-Public Use
  Company Number: US-RANBAXY-2009RR-29829

PATIENT
  Age: 81 Year
  Sex: Female

DRUGS (1)
  1. CEFAZOLIN [Suspect]
     Indication: PANCREATITIS
     Route: 042

REACTIONS (2)
  - DRUG HYPERSENSITIVITY [None]
  - STRESS CARDIOMYOPATHY [None]
